FAERS Safety Report 13906995 (Version 1)
Quarter: 2017Q3

REPORT INFORMATION
  Report Type: Spontaneous
  Country: US (occurrence: US)
  Receive Date: 20170825
  Receipt Date: 20170825
  Transmission Date: 20171127
  Serious: Yes (Hospitalization)
  Sender: FDA-Public Use
  Company Number: US-FERRINGPH-2017FE04107

PATIENT

DRUGS (2)
  1. DESMOPRESSIN [Suspect]
     Active Substance: DESMOPRESSIN
     Indication: ANTIDIURETIC HORMONE ABNORMALITY
     Dosage: 1 SPRAY, 2 TIMES DAILY
     Route: 045
     Dates: start: 2015
  2. DESMOPRESSIN [Suspect]
     Active Substance: DESMOPRESSIN
     Dosage: 1 SPRAY, 1 TIME DAILY
     Route: 045
     Dates: end: 201602

REACTIONS (5)
  - Vomiting [Recovered/Resolved]
  - Depression [Recovered/Resolved]
  - Product use in unapproved indication [Unknown]
  - Hypersensitivity [Recovered/Resolved]
  - Headache [Recovered/Resolved]
